FAERS Safety Report 9801007 (Version 3)
Quarter: 2014Q1

REPORT INFORMATION
  Report Type: Report from Study
  Country: US (occurrence: US)
  Receive Date: 20140107
  Receipt Date: 20140307
  Transmission Date: 20141002
  Serious: Yes (Hospitalization, Other)
  Sender: FDA-Public Use
  Company Number: US-ABBVIE-14P-163-1185493-00

PATIENT
  Sex: Male
  Weight: 64.01 kg

DRUGS (7)
  1. HUMIRA [Suspect]
     Indication: CROHN^S DISEASE
     Dosage: LOADING DOSE
     Dates: start: 20131029, end: 20131029
  2. HUMIRA [Suspect]
     Dates: start: 20140108
  3. ENTOCORT [Concomitant]
  4. ALLEGRA [Concomitant]
  5. NEURONTIN [Concomitant]
  6. VICODIN [Concomitant]
  7. NASONEX [Concomitant]

REACTIONS (6)
  - Gastrointestinal inflammation [Not Recovered/Not Resolved]
  - Crohn^s disease [Not Recovered/Not Resolved]
  - Gastrointestinal fistula [Not Recovered/Not Resolved]
  - Post procedural haemorrhage [Recovered/Resolved]
  - Intestinal resection [Recovering/Resolving]
  - Crohn^s disease [Unknown]
